FAERS Safety Report 7575471-2 (Version None)
Quarter: 2011Q2

REPORT INFORMATION
  Report Type: 
  Country: None (occurrence: None)
  Receive Date: 20110627
  Receipt Date: 20110617
  Transmission Date: 20111010
  Serious: Yes (Other)
  Sender: FDA-Public Use
  Company Number: US-ASTRAZENECA-2008UW28608

PATIENT
  Age: 73 Year
  Sex: Female
  Weight: 74.8 kg

DRUGS (9)
  1. ARIMIDEX [Suspect]
     Indication: BREAST CANCER RECURRENT
     Route: 048
     Dates: start: 20060101, end: 20110101
  2. ARIMIDEX [Suspect]
     Indication: BREAST CANCER
     Route: 048
     Dates: start: 20060101, end: 20110101
  3. ATENOLOL [Concomitant]
  4. BYSTOLIC [Concomitant]
  5. ZOMETA [Concomitant]
  6. LISINOPRIL [Concomitant]
  7. SYNTHROID [Concomitant]
  8. DIOVAN [Concomitant]
  9. TYLENOL-500 [Concomitant]

REACTIONS (7)
  - METASTASES TO BONE [None]
  - BREAST CANCER METASTATIC [None]
  - VAGINAL DISCHARGE [None]
  - BURNING SENSATION [None]
  - BLOOD URINE PRESENT [None]
  - NEOPLASM PROGRESSION [None]
  - HOT FLUSH [None]
